FAERS Safety Report 18489636 (Version 1)
Quarter: 2020Q4

REPORT INFORMATION
  Report Type: Spontaneous
  Country: US (occurrence: US)
  Receive Date: 20201110
  Receipt Date: 20201110
  Transmission Date: 20210114
  Serious: Yes (Hospitalization)
  Sender: FDA-Public Use
  Company Number: None

PATIENT
  Sex: Male

DRUGS (5)
  1. MEKINIST [Suspect]
     Active Substance: TRAMETINIB DIMETHYL SULFOXIDE
     Indication: CARCINOID TUMOUR
     Route: 048
     Dates: start: 20201015
  2. TAFINLAR [Suspect]
     Active Substance: DABRAFENIB MESYLATE
     Indication: CARCINOID TUMOUR
     Route: 048
     Dates: start: 20201015
  3. ELIQUIS [Concomitant]
     Active Substance: APIXABAN
  4. NAPROXEN. [Concomitant]
     Active Substance: NAPROXEN
  5. MIRTAZIPINE [Concomitant]
     Active Substance: MIRTAZAPINE

REACTIONS (1)
  - Pyrexia [None]
